FAERS Safety Report 7151316-X (Version None)
Quarter: 2010Q4

REPORT INFORMATION
  Report Type: 
  Country: None (occurrence: None)
  Receive Date: 20101210
  Receipt Date: 20101203
  Transmission Date: 20110411
  Serious: Yes (Other)
  Sender: FDA-Public Use
  Company Number: HU-GENZYME-CLOF-1001216

PATIENT
  Sex: Female
  Weight: 32 kg

DRUGS (14)
  1. EVOLTRA [Suspect]
     Indication: ACUTE LYMPHOCYTIC LEUKAEMIA
     Dosage: 50 MG/M2, QDX4
     Route: 042
     Dates: start: 20090728, end: 20090731
  2. BUSILVEX [Suspect]
     Indication: ACUTE LYMPHOCYTIC LEUKAEMIA
     Dosage: 16X0.95 MG/UNK
     Route: 042
     Dates: start: 20090728, end: 20090801
  3. CYCLOPHOSPHAMIDE [Suspect]
     Indication: ACUTE LYMPHOCYTIC LEUKAEMIA
     Dosage: 120 MG/KG, UNK
     Route: 042
     Dates: start: 20090801, end: 20090802
  4. METHOTREXATE [Suspect]
     Indication: PRODUCT USED FOR UNKNOWN INDICATION
     Dosage: UNK
     Route: 065
     Dates: start: 20090801, end: 20090802
  5. ANTI-THYMOCYTE GLOBULIN NOS [Suspect]
     Indication: PRODUCT USED FOR UNKNOWN INDICATION
     Dosage: 2X30 MG/UNK
     Route: 065
     Dates: start: 20090801, end: 20090804
  6. CYCLOSPORINE [Concomitant]
     Indication: PROPHYLAXIS AGAINST GRAFT VERSUS HOST DISEASE
     Dosage: UNK
     Route: 065
  7. METHOTREXATE [Concomitant]
     Indication: PROPHYLAXIS AGAINST GRAFT VERSUS HOST DISEASE
     Dosage: UNK
     Route: 065
  8. DIFLUCAN [Concomitant]
     Indication: PYREXIA
     Dosage: 1X100 MG DAILY
     Route: 042
     Dates: start: 20090728, end: 20090913
  9. PRILOSEC [Concomitant]
     Indication: PROPHYLAXIS
     Dosage: 1X20 MG, QD
     Route: 048
     Dates: start: 20090728
  10. HEPARIN [Concomitant]
     Indication: PROPHYLAXIS
     Dosage: 1X3000 UNK DAILY
     Route: 042
     Dates: start: 20090728, end: 20090831
  11. METHOTREXATE [Concomitant]
     Dosage: 10 MG/M2, QD
     Route: 065
     Dates: start: 20090807, end: 20090807
  12. METHOTREXATE [Concomitant]
     Dosage: 10 MG/M2, QD
     Route: 065
     Dates: start: 20090809, end: 20090809
  13. METHOTREXATE [Concomitant]
     Dosage: 10 MG/M2, QD
     Route: 065
     Dates: start: 20090812, end: 20090812
  14. METHOTREXATE [Concomitant]
     Dosage: 10 MG/M2, QD
     Route: 065
     Dates: start: 20090817, end: 20090817

REACTIONS (4)
  - ACUTE GRAFT VERSUS HOST DISEASE IN LIVER [None]
  - ACUTE GRAFT VERSUS HOST DISEASE IN SKIN [None]
  - CHRONIC GRAFT VERSUS HOST DISEASE [None]
  - ENGRAFTMENT SYNDROME [None]
